FAERS Safety Report 8996700 (Version 1)
Quarter: 2013Q1

REPORT INFORMATION
  Report Type: Spontaneous
  Country: US (occurrence: US)
  Receive Date: 20130104
  Receipt Date: 20130104
  Transmission Date: 20140127
  Serious: Yes (Hospitalization)
  Sender: FDA-Public Use
  Company Number: PHEH2012US025651

PATIENT
  Sex: Male

DRUGS (1)
  1. TASIGNA [Suspect]
     Dosage: 150 MG

REACTIONS (5)
  - Angina pectoris [Unknown]
  - Pain in jaw [Unknown]
  - Rhinalgia [Unknown]
  - Eye pain [Unknown]
  - Fatigue [Unknown]
